FAERS Safety Report 22101145 (Version 1)
Quarter: 2023Q1

REPORT INFORMATION
  Report Type: Other
  Country: None (occurrence: IN)
  Receive Date: 20230316
  Receipt Date: 20230316
  Transmission Date: 20230417
  Serious: Yes (Hospitalization, Other)
  Sender: FDA-Public Use
  Company Number: IN-Innogenix, LLC-2139142

PATIENT
  Age: 65 Year
  Sex: Female

DRUGS (1)
  1. BACLOFEN [Suspect]
     Active Substance: BACLOFEN
     Indication: Hiccups
     Route: 048

REACTIONS (4)
  - Frontotemporal dementia [Recovered/Resolved]
  - Quadriparesis [Recovered/Resolved]
  - Depressed level of consciousness [Recovered/Resolved]
  - Neurotoxicity [Recovered/Resolved]
